FAERS Safety Report 6684391-7 (Version None)
Quarter: 2010Q2

REPORT INFORMATION
  Report Type: 
  Country: None (occurrence: None)
  Receive Date: 20100416
  Receipt Date: 20100409
  Transmission Date: 20101027
  Serious: Yes (Other)
  Sender: FDA-Public Use
  Company Number: CN-PFIZER INC-2010044790

PATIENT

DRUGS (1)
  1. XALATAN [Suspect]
     Indication: GLAUCOMATOCYCLITIC CRISES
     Dosage: UNK

REACTIONS (1)
  - INTRAOCULAR PRESSURE INCREASED [None]
